FAERS Safety Report 9011523 (Version 1)
Quarter: 2013Q1

REPORT INFORMATION
  Report Type: Spontaneous
  Country: US (occurrence: US)
  Receive Date: 20130111
  Receipt Date: 20130111
  Transmission Date: 20140127
  Serious: Yes (Hospitalization)
  Sender: FDA-Public Use
  Company Number: US-B.I. PHARMACEUTICALS,INC./RIDGEFIELD-2013-BI-00271BP

PATIENT
  Age: 74 Year
  Sex: Male

DRUGS (9)
  1. PRADAXA [Suspect]
     Indication: CEREBROVASCULAR ACCIDENT PROPHYLAXIS
     Dosage: 300 MG
     Route: 048
  2. PRADAXA [Suspect]
     Indication: ATRIAL FIBRILLATION
  3. METOPROLOL [Concomitant]
     Dosage: 50 MG
  4. POTASSIUM CHLORIDE [Concomitant]
     Dosage: 20 MEQ
  5. LOSARTAN [Concomitant]
     Dosage: 100 MG
  6. FLOMAX [Concomitant]
  7. LASIX [Concomitant]
     Dosage: 60 MG
  8. PROTONIX [Concomitant]
     Dosage: 40 MG
  9. ISOSORBIDE [Concomitant]
     Dosage: 60 MG

REACTIONS (2)
  - Haematemesis [Recovered/Resolved]
  - Gastrointestinal haemorrhage [Recovered/Resolved]
